FAERS Safety Report 4575969-5 (Version None)
Quarter: 2005Q1

REPORT INFORMATION
  Report Type: 
  Country: None (occurrence: None)
  Receive Date: 20050209
  Receipt Date: 20050128
  Transmission Date: 20050727
  Serious: Yes (Hospitalization)
  Sender: FDA-Public Use
  Company Number: US-BRISTOL-MYERS SQUIBB COMPANY-12842811

PATIENT
  Sex: Male

DRUGS (4)
  1. REYATAZ [Suspect]
     Indication: HIV INFECTION
     Dates: start: 20041001, end: 20050101
  2. ZERIT [Suspect]
     Indication: HIV INFECTION
     Dates: start: 20041001
  3. TENOFOVIR [Suspect]
     Dates: start: 20041001
  4. RITONAVIR [Suspect]
     Dates: start: 20041001, end: 20050101

REACTIONS (3)
  - JAUNDICE [None]
  - NAUSEA [None]
  - VOMITING [None]
